FAERS Safety Report 6697404-3 (Version None)
Quarter: 2010Q2

REPORT INFORMATION
  Report Type: 
  Country: None (occurrence: None)
  Receive Date: 20100426
  Receipt Date: 20100412
  Transmission Date: 20101027
  Serious: Yes (Other)
  Sender: FDA-Public Use
  Company Number: NG-MYLANLABS-2010S1006188

PATIENT
  Age: 30 Year
  Sex: Female

DRUGS (7)
  1. BROMOCRIPTINE [Suspect]
     Indication: PITUITARY TUMOUR BENIGN
     Route: 065
  2. BROMOCRIPTINE [Suspect]
     Route: 048
  3. THIOPENTAL SODIUM [Concomitant]
     Indication: GENERAL ANAESTHESIA
     Route: 065
  4. AMPICLOX                           /00190301/ [Concomitant]
     Indication: ANTIBIOTIC PROPHYLAXIS
     Route: 065
  5. METRONIDAZOLE [Concomitant]
     Indication: ANTIBIOTIC PROPHYLAXIS
     Route: 065
  6. MEPERIDINE HCL [Concomitant]
     Route: 065
  7. PROMETHAZINE [Concomitant]
     Route: 065

REACTIONS (5)
  - CARDIAC ARREST [None]
  - DRUG EXPOSURE DURING PREGNANCY [None]
  - HYPERTENSION [None]
  - HYPERTENSIVE ENCEPHALOPATHY [None]
  - NORMAL NEWBORN [None]
